FAERS Safety Report 7112507-7 (Version None)
Quarter: 2010Q4

REPORT INFORMATION
  Report Type: 
  Country: None (occurrence: None)
  Receive Date: 20101119
  Receipt Date: 20101108
  Transmission Date: 20110411
  Serious: Yes (Hospitalization)
  Sender: FDA-Public Use
  Company Number: US-BAYER-201022665NA

PATIENT
  Age: 24 Year
  Sex: Female
  Weight: 91 kg

DRUGS (10)
  1. YAZ [Suspect]
     Indication: ACNE
     Route: 048
     Dates: start: 20080901, end: 20090601
  2. YASMIN [Suspect]
     Indication: ACNE
     Route: 048
     Dates: start: 20080901, end: 20090601
  3. PHENTERMINE [Concomitant]
  4. PRILOSEC [Concomitant]
     Indication: GASTROOESOPHAGEAL REFLUX DISEASE
     Dosage: TOTAL DAILY DOSE: 20 MG  UNIT DOSE: 20 MG
     Route: 048
  5. DOXYCYCLINE [Concomitant]
     Indication: ACNE
     Dosage: TOTAL DAILY DOSE: 200 MG  UNIT DOSE: 100 MG
  6. IBUPROFEN [Concomitant]
     Indication: PAIN
  7. METOCLOPRAMIDE [Concomitant]
     Dosage: TOTAL DAILY DOSE: 40 MG  UNIT DOSE: 10 MG
     Route: 048
  8. PERCOCET [Concomitant]
     Indication: PAIN
     Dosage: 5/325 MG - ONE TO TWO TABS FOUR TIMES A DAY
  9. SENNKOT [Concomitant]
  10. ADIPEX [Concomitant]

REACTIONS (5)
  - ABDOMINAL PAIN [None]
  - ABDOMINAL PAIN UPPER [None]
  - CHOLECYSTITIS CHRONIC [None]
  - DYSPEPSIA [None]
  - NAUSEA [None]
